FAERS Safety Report 23249657 (Version 1)
Quarter: 2023Q4

REPORT INFORMATION
  Report Type: Spontaneous
  Country: CA (occurrence: CA)
  Receive Date: 20231201
  Receipt Date: 20231201
  Transmission Date: 20240110
  Serious: Yes (Other)
  Sender: FDA-Public Use
  Company Number: CA-009507513-2311CAN009907

PATIENT
  Sex: Female

DRUGS (1)
  1. WELIREG [Suspect]
     Active Substance: BELZUTIFAN
     Dosage: 120 MG, UNK
     Route: 048

REACTIONS (4)
  - Xerophthalmia [Unknown]
  - Injury [Unknown]
  - Wound [Unknown]
  - Vision blurred [Unknown]
